FAERS Safety Report 8812695 (Version 5)
Quarter: 2013Q2

REPORT INFORMATION
  Report Type: Report from Study
  Country: US (occurrence: US)
  Receive Date: 20120927
  Receipt Date: 20130606
  Transmission Date: 20140414
  Serious: Yes (Other)
  Sender: FDA-Public Use
  Company Number: US-ABBOTT-12P-163-0985946-00

PATIENT
  Age: 40 Year
  Sex: Female
  Weight: 63.56 kg

DRUGS (7)
  1. HUMIRA [Suspect]
     Indication: PSORIASIS
     Route: 058
     Dates: start: 201109, end: 201109
  2. HUMIRA [Suspect]
     Route: 058
     Dates: start: 20120523
  3. DERMASMOOTHE SCALP OIL [Concomitant]
     Indication: PSORIASIS
     Dates: start: 201106
  4. PRED FORTE [Concomitant]
     Indication: GLAUCOMA
     Dates: start: 201202
  5. PILOCARPINE EYE DROPS [Concomitant]
     Indication: GLAUCOMA
     Dosage: 1%
     Dates: start: 201202
  6. PILOCARPINE EYE DROPS [Concomitant]
     Dosage: 0.2-0.5%
     Dates: start: 201202
  7. COMBIGAN [Concomitant]
     Indication: GLAUCOMA
     Dates: start: 201202

REACTIONS (1)
  - Angle closure glaucoma [Not Recovered/Not Resolved]
